FAERS Safety Report 25549402 (Version 1)
Quarter: 2025Q3

REPORT INFORMATION
  Report Type: Spontaneous
  Country: US (occurrence: US)
  Receive Date: 20250714
  Receipt Date: 20250714
  Transmission Date: 20251021
  Serious: Yes (Life-Threatening, Other)
  Sender: PFIZER
  Company Number: US-PFIZER INC-PV202500082178

PATIENT
  Age: 24 Year
  Sex: Female

DRUGS (4)
  1. CELONTIN [Suspect]
     Active Substance: METHSUXIMIDE
     Indication: Focal dyscognitive seizures
     Dates: start: 1961
  2. DILANTIN [Suspect]
     Active Substance: PHENYTOIN
     Indication: Focal dyscognitive seizures
     Dosage: 0.5 G, DAILY
     Dates: start: 195010, end: 1962
  3. PHENOBARBITAL [Suspect]
     Active Substance: PHENOBARBITAL
     Indication: Focal dyscognitive seizures
     Dates: start: 195210
  4. MYSOLINE [Suspect]
     Active Substance: PRIMIDONE
     Indication: Focal dyscognitive seizures
     Dosage: 250 MG, 3X/DAY
     Dates: start: 195210

REACTIONS (1)
  - Hodgkin^s disease [Unknown]

NARRATIVE: CASE EVENT DATE: 19611001
